FAERS Safety Report 8975106 (Version 1)
Quarter: 2012Q4

REPORT INFORMATION
  Report Type: 
  Country: US (occurrence: US)
  Receive Date: 20121219
  Receipt Date: 20121219
  Transmission Date: 20130627
  Serious: No
  Sender: FDA-Public Use
  Company Number: US-AMGEN-USASP2012073432

PATIENT
  Age: 91 Year
  Sex: Female
  Weight: 42.18 kg

DRUGS (4)
  1. PROLIA [Suspect]
     Indication: OSTEOPOROSIS POSTMENOPAUSAL
     Dosage: 60 mg, q6mo
     Route: 058
     Dates: start: 201209
  2. CRESTOR [Concomitant]
     Dosage: 5 mg, UNK
  3. VITAMIN D                          /00107901/ [Concomitant]
     Dosage: UNK
  4. LOSARTAN [Concomitant]
     Dosage: 25 mg, UNK

REACTIONS (1)
  - Bone pain [Not Recovered/Not Resolved]
